FAERS Safety Report 4331502-4 (Version None)
Quarter: 2004Q1

REPORT INFORMATION
  Report Type: 
  Country: None (occurrence: None)
  Receive Date: 20040331
  Receipt Date: 20040317
  Transmission Date: 20041129
  Serious: Yes (Other)
  Sender: FDA-Public Use
  Company Number: GBS040314609

PATIENT
  Age: 60 Year
  Sex: Male
  Weight: 92 kg

DRUGS (4)
  1. CIALIS [Suspect]
     Indication: ERECTILE DYSFUNCTION
     Dates: start: 20040315, end: 20040315
  2. CELIPROLOL HYDROCHLORIDE [Concomitant]
  3. GLYCLAZIDE [Concomitant]
  4. ZESTORETIC [Concomitant]

REACTIONS (1)
  - PENIS DISORDER [None]
